FAERS Safety Report 23283077 (Version 1)
Quarter: 2023Q4

REPORT INFORMATION
  Report Type: Spontaneous
  Country: US (occurrence: US)
  Receive Date: 20231211
  Receipt Date: 20231211
  Transmission Date: 20240110
  Serious: No
  Sender: FDA-Public Use
  Company Number: US-IMMUNOGEN, INC.-US-IMGN-23-00528

PATIENT
  Sex: Female

DRUGS (4)
  1. ELAHERE [Suspect]
     Active Substance: MIRVETUXIMAB SORAVTANSINE-GYNX
     Indication: Product used for unknown indication
     Dosage: 1MG/MIN X 30 MIN, 3MG/MIN X 30MIN AND 5MG/MIN FOR THE REMAINING INFUSION
     Route: 042
  2. SOLU-CORTEF [Concomitant]
     Active Substance: HYDROCORTISONE SODIUM SUCCINATE
     Indication: Pruritus
     Dosage: 100 MILLIGRAM, UNK
     Route: 042
     Dates: start: 20230821, end: 20230821
  3. BENADRYL [Concomitant]
     Active Substance: DIPHENHYDRAMINE HYDROCHLORIDE
     Indication: Pruritus
     Dosage: 25 MILLIGRAM, Q6H
     Route: 048
     Dates: start: 20230821, end: 20230822
  4. DECADRON [Concomitant]
     Active Substance: DEXAMETHASONE
     Indication: Premedication
     Dosage: 8 MILLIGRAM, BID
     Route: 048
     Dates: start: 20230918, end: 20230918

REACTIONS (2)
  - Rash papular [Recovering/Resolving]
  - Pruritus [Recovering/Resolving]

NARRATIVE: CASE EVENT DATE: 20230919
